FAERS Safety Report 10240297 (Version 1)
Quarter: 2014Q2

REPORT INFORMATION
  Report Type: Report from Study
  Country: FR (occurrence: FR)
  Receive Date: 20140617
  Receipt Date: 20140617
  Transmission Date: 20141212
  Serious: Yes (Other)
  Sender: FDA-Public Use
  Company Number: PHHO2014FR008524

PATIENT
  Sex: 0

DRUGS (10)
  1. AFINITOR [Suspect]
     Dosage: 10 MG, QD
     Route: 048
     Dates: start: 20140102, end: 20140113
  2. ESIDREX [Concomitant]
  3. PLAVIX [Concomitant]
     Dosage: 75 MG, UNK
  4. TAHOR [Concomitant]
     Dosage: 20 MG, UNK
  5. COVERAM [Concomitant]
     Dosage: 10 MG, UNK
  6. OMEXEL [Concomitant]
     Dosage: 0.4
  7. SECTRAL [Concomitant]
     Dosage: UNK, QD
  8. GIVALEX [Concomitant]
     Dosage: UNK
     Dates: start: 20140102
  9. ASPEGIC                                 /FRA/ [Concomitant]
     Dosage: UNK
     Dates: start: 20140102
  10. BICARBONATE [Concomitant]
     Dosage: UNK
     Dates: start: 20140102

REACTIONS (1)
  - Mucosal inflammation [Recovering/Resolving]
